FAERS Safety Report 7176965-4 (Version None)
Quarter: 2010Q4

REPORT INFORMATION
  Report Type: 
  Country: None (occurrence: None)
  Receive Date: 20101216
  Receipt Date: 20101216
  Transmission Date: 20110411
  Serious: Yes (Other)
  Sender: FDA-Public Use
  Company Number: None

PATIENT
  Sex: Female
  Weight: 59.8748 kg

DRUGS (2)
  1. DARVOCET-N 100 [Suspect]
     Indication: BREAST CANCER
     Dosage: ONE OR TWO Q6HR PRN P.O.
     Route: 048
     Dates: start: 20060101
  2. DARVOCET-N 100 [Suspect]
     Indication: RADIATION ASSOCIATED PAIN
     Dosage: ONE OR TWO Q6HR PRN P.O.
     Route: 048
     Dates: start: 20060101

REACTIONS (1)
  - NO ADVERSE EVENT [None]
